FAERS Safety Report 17405847 (Version 4)
Quarter: 2020Q4

REPORT INFORMATION
  Report Type: Spontaneous
  Country: US (occurrence: US)
  Receive Date: 20200212
  Receipt Date: 20201201
  Transmission Date: 20210113
  Serious: Yes (Hospitalization, Other)
  Sender: FDA-Public Use
  Company Number: US-BRISTOL-MYERS SQUIBB COMPANY-BMS-2020-011632

PATIENT
  Age: 49 Year
  Sex: Male

DRUGS (1)
  1. SPRYCEL [Suspect]
     Active Substance: DASATINIB
     Indication: FOLLICULAR DENDRITIC CELL SARCOMA
     Dosage: 100 MILLIGRAM, QD
     Route: 048
     Dates: start: 20121120

REACTIONS (8)
  - Fluid retention [Unknown]
  - Peripheral swelling [Unknown]
  - Intentional product use issue [Unknown]
  - Pulmonary oedema [Unknown]
  - Pneumonia [Unknown]
  - Oedema peripheral [Unknown]
  - Pericardial effusion [Unknown]
  - Adverse event [Unknown]

NARRATIVE: CASE EVENT DATE: 20200503
